FAERS Safety Report 10485739 (Version 3)
Quarter: 2015Q1

REPORT INFORMATION
  Report Type: Spontaneous
  Country: US (occurrence: US)
  Receive Date: 20141001
  Receipt Date: 20150303
  Transmission Date: 20150720
  Serious: Yes (Hospitalization)
  Sender: FDA-Public Use
  Company Number: US-UNITED THERAPEUTICS-UNT-2014-008111

PATIENT
  Age: 66 Year
  Sex: Female
  Weight: 51.7 kg

DRUGS (3)
  1. TYVASO [Suspect]
     Active Substance: TREPROSTINIL
     Indication: COR PULMONALE CHRONIC
     Dosage: 18-54 ?G, QID
     Dates: start: 20140818, end: 20141218
  2. XARELTO [Concomitant]
     Active Substance: RIVAROXABAN
     Indication: PRODUCT USED FOR UNKNOWN INDICATION
  3. TYVASO [Suspect]
     Active Substance: TREPROSTINIL
     Dosage: 18-54 ?G, QID

REACTIONS (7)
  - Pneumonia [Unknown]
  - Fluid retention [Recovered/Resolved]
  - Oedema [Unknown]
  - Dyspnoea [Unknown]
  - Epistaxis [Unknown]
  - Urinary tract infection [Unknown]
  - Septic shock [Unknown]

NARRATIVE: CASE EVENT DATE: 20140911
